FAERS Safety Report 16707831 (Version 2)
Quarter: 2019Q3

REPORT INFORMATION
  Report Type: Spontaneous
  Country: US (occurrence: US)
  Receive Date: 20190815
  Receipt Date: 20190828
  Transmission Date: 20191004
  Serious: Yes (Other)
  Sender: FDA-Public Use
  Company Number: US-BAYER-2018-228783

PATIENT
  Age: 18 Year
  Sex: Female
  Weight: 93.89 kg

DRUGS (22)
  1. DICYCLOMINE [DICYCLOVERINE HYDROCHLORIDE] [Concomitant]
     Dosage: UNK
     Dates: start: 2017
  2. LORATADINE. [Concomitant]
     Active Substance: LORATADINE
     Dosage: UNK
     Dates: start: 2005
  3. METOCLOPRAMIDE HCL [Concomitant]
     Active Substance: METOCLOPRAMIDE HYDROCHLORIDE
     Dosage: UNK
     Dates: start: 2016
  4. ZANTAC [Concomitant]
     Active Substance: RANITIDINE HYDROCHLORIDE
     Dosage: UNK
     Dates: start: 2008
  5. ONDANSETRON ODT DRLA [Concomitant]
     Active Substance: ONDANSETRON
     Dosage: UNK
     Dates: start: 2017, end: 2017
  6. DULERA [Concomitant]
     Active Substance: FORMOTEROL FUMARATE DIHYDRATE\MOMETASONE FUROATE
     Dosage: UNK
     Dates: start: 2018
  7. ALBUTEROL [SALBUTAMOL] [Concomitant]
     Active Substance: ALBUTEROL
     Dosage: UNK
     Dates: start: 1985
  8. GABENINE [Concomitant]
     Dosage: UNK
     Dates: start: 2015
  9. VITAMIN D [VITAMIN D NOS] [Concomitant]
     Active Substance: VITAMIN D NOS
     Dosage: UNK
     Dates: start: 2011, end: 2015
  10. LAMOTRIGINE. [Concomitant]
     Active Substance: LAMOTRIGINE
     Dosage: UNK
     Dates: start: 2015
  11. PARACETAMOL [Concomitant]
     Active Substance: ACETAMINOPHEN
  12. ABILIFY [Concomitant]
     Active Substance: ARIPIPRAZOLE
     Dosage: UNK
     Dates: start: 2011, end: 2015
  13. MELATONIN [Concomitant]
     Active Substance: MELATONIN
     Dosage: UNK
     Dates: start: 2014, end: 2016
  14. ESSURE [Suspect]
     Active Substance: DEVICE
     Indication: FEMALE STERILISATION
     Dosage: UNK
     Dates: start: 20081003
  15. MIRENA [Suspect]
     Active Substance: LEVONORGESTREL
     Indication: CONTRACEPTION
     Dosage: 24 MCG/24HR, CONT
     Route: 015
     Dates: start: 2007, end: 2009
  16. DEPO-PROVERA [Concomitant]
     Active Substance: MEDROXYPROGESTERONE ACETATE
     Dosage: UNK
     Dates: start: 2015, end: 2015
  17. IBUPROFEN. [Concomitant]
     Active Substance: IBUPROFEN
     Dosage: UNK
     Dates: start: 2016
  18. VESICARE [Concomitant]
     Active Substance: SOLIFENACIN SUCCINATE
     Dosage: UNK
     Dates: start: 2016
  19. DIPHENHYDRAMINE HYDROCHLORIDE. [Concomitant]
     Active Substance: DIPHENHYDRAMINE HYDROCHLORIDE
     Dosage: UNK
     Dates: start: 2011, end: 2016
  20. MIRENA [Suspect]
     Active Substance: LEVONORGESTREL
     Indication: CONTRACEPTION
     Dosage: 24 MCG/24HR, CONT
     Route: 015
     Dates: start: 2007, end: 2009
  21. EFFEXOR [Concomitant]
     Active Substance: VENLAFAXINE HYDROCHLORIDE
     Dosage: UNK
     Dates: start: 1991
  22. WELLBUTRIN [Concomitant]
     Active Substance: BUPROPION HYDROCHLORIDE
     Dosage: UNK
     Dates: start: 2014, end: 2016

REACTIONS (31)
  - Menorrhagia [Unknown]
  - Genital haemorrhage [Unknown]
  - Depression [Unknown]
  - Tooth loss [Unknown]
  - Back pain [Unknown]
  - Vaginal haemorrhage [Unknown]
  - Nausea [Unknown]
  - Abdominal pain lower [Unknown]
  - Autoimmune disorder [Unknown]
  - Uterine leiomyoma [Unknown]
  - Anaemia [Unknown]
  - Alopecia [Unknown]
  - Abdominal pain upper [Unknown]
  - Genital cyst [Unknown]
  - Dermatitis allergic [Unknown]
  - Fatigue [Unknown]
  - Vision blurred [Unknown]
  - Post-traumatic stress disorder [Unknown]
  - Urinary incontinence [Unknown]
  - Migraine [Unknown]
  - Dyspareunia [Unknown]
  - Weight fluctuation [Unknown]
  - Colitis [Unknown]
  - Uterine perforation [Unknown]
  - Cholecystectomy [Unknown]
  - Female sexual dysfunction [Unknown]
  - Heart rate irregular [Unknown]
  - Dysmenorrhoea [Unknown]
  - Irritable bowel syndrome [Unknown]
  - Pain in extremity [Unknown]
  - Headache [Unknown]

NARRATIVE: CASE EVENT DATE: 2008
